FAERS Safety Report 13693329 (Version 2)
Quarter: 2017Q3

REPORT INFORMATION
  Report Type: Report from Study
  Country: FR (occurrence: FR)
  Receive Date: 20170627
  Receipt Date: 20170706
  Transmission Date: 20171127
  Serious: Yes (Hospitalization)
  Sender: FDA-Public Use
  Company Number: FR-ROCHE-1936478

PATIENT
  Age: 58 Year
  Sex: Female
  Weight: 70 kg

DRUGS (34)
  1. NOVORAPID [Concomitant]
     Active Substance: INSULIN ASPART
     Route: 058
     Dates: start: 20170510, end: 20170608
  2. FUCIDINE [Concomitant]
     Active Substance: FUSIDIC ACID
     Dosage: 2 OTHER
     Route: 062
     Dates: start: 201705, end: 20170518
  3. PLACEBO [Suspect]
     Active Substance: UNSPECIFIED INGREDIENT
     Indication: LUPUS NEPHRITIS
     Dosage: ON 06/MAR/2017, SHE RECEIVED MOST RECENT DOSE OF BLINDED METHYPREDNISOLONE PRIOR TO SAE
     Route: 042
     Dates: start: 20170217
  4. CHOLURSO [Concomitant]
     Active Substance: URSODIOL
     Route: 048
     Dates: start: 2009
  5. FUROSEMIDE. [Concomitant]
     Active Substance: FUROSEMIDE
     Route: 048
     Dates: start: 20170217, end: 20170607
  6. CEFALEXINE [Concomitant]
     Active Substance: CEPHALEXIN
     Route: 048
     Dates: start: 201705, end: 20170520
  7. BIOCIDAN [Concomitant]
     Dosage: 3 OTHER
     Route: 047
     Dates: start: 201705, end: 20170518
  8. PLACEBO [Suspect]
     Active Substance: UNSPECIFIED INGREDIENT
     Indication: LUPUS NEPHRITIS
     Dosage: ON 06/MAR/2017, SHE RECEIVED MOST RECENT DOSE OF BLINDED OBINUTUZUMAB PRIOR TO SAE
     Route: 042
     Dates: start: 20170217
  9. AMLODIPINE [Concomitant]
     Active Substance: AMLODIPINE BESYLATE
     Route: 048
     Dates: start: 20161212
  10. VALSARTAN. [Concomitant]
     Active Substance: VALSARTAN
     Route: 048
     Dates: start: 20161212
  11. TAHOR [Concomitant]
     Active Substance: ATORVASTATIN CALCIUM
     Route: 048
     Dates: start: 201205
  12. TAHOR [Concomitant]
     Active Substance: ATORVASTATIN CALCIUM
     Route: 048
     Dates: start: 2015
  13. PARACETAMOL [Concomitant]
     Active Substance: ACETAMINOPHEN
     Route: 048
     Dates: start: 2013
  14. CORTANCYL [Concomitant]
     Active Substance: PREDNISONE
     Indication: LUPUS NEPHRITIS
     Route: 048
     Dates: start: 20170119, end: 20170427
  15. TIORFAN [Concomitant]
     Active Substance: RACECADOTRIL
     Route: 048
     Dates: start: 20170306, end: 201705
  16. MUCOMYST [Concomitant]
     Active Substance: ACETYLCYSTEINE
     Route: 048
     Dates: start: 201705, end: 20170520
  17. BACTRIM [Concomitant]
     Active Substance: SULFAMETHOXAZOLE\TRIMETHOPRIM
     Dosage: 0.5 TABLET
     Route: 048
     Dates: start: 20170217
  18. OMEPRAZOLE. [Concomitant]
     Active Substance: OMEPRAZOLE
     Route: 048
     Dates: start: 2012
  19. BISOCE [Concomitant]
     Active Substance: BISOPROLOL
     Route: 048
     Dates: start: 20161114
  20. SMECTA [Concomitant]
     Active Substance: MONTMORILLONITE
     Route: 048
     Dates: start: 20170306, end: 201705
  21. BICARBONATE DE SODIUM [Concomitant]
     Active Substance: SODIUM BICARBONATE
     Dosage: 2 CAPSULE
     Route: 001
     Dates: start: 201705
  22. VALACICLOVIR [Concomitant]
     Active Substance: VALACYCLOVIR HYDROCHLORIDE
     Route: 048
     Dates: start: 20170508, end: 20170513
  23. ZYLORIC [Concomitant]
     Active Substance: ALLOPURINOL
     Route: 048
     Dates: start: 20161121
  24. REFRESH (CARBOXYMETHYLCELLULOSE SODIUM) [Concomitant]
     Route: 047
     Dates: start: 20161121
  25. BIOCIDAN [Concomitant]
     Dosage: 3 OTHER
     Route: 047
     Dates: start: 201705, end: 20170518
  26. MYCOPHENOLATE MOFETIL. [Suspect]
     Active Substance: MYCOPHENOLATE MOFETIL
     Indication: LUPUS NEPHRITIS
     Dosage: ON 13/MAY/2017, SHE RECEIVED MOST RECENT DOSE OF MYCOPHENOLATE MOFETIL PRIOR TO SAE?-STARTING DOSE O
     Route: 048
     Dates: start: 20170118
  27. NOVORAPID [Concomitant]
     Active Substance: INSULIN ASPART
     Route: 058
     Dates: start: 20161121, end: 20170510
  28. ACTONEL [Concomitant]
     Active Substance: RISEDRONATE SODIUM
     Route: 048
     Dates: start: 20170217
  29. LEVEMIR [Concomitant]
     Active Substance: INSULIN DETEMIR
     Route: 058
     Dates: start: 20161121
  30. KARDEGIC [Concomitant]
     Active Substance: ASPIRIN LYSINE
     Route: 048
     Dates: start: 20161121
  31. ESIDREX [Concomitant]
     Active Substance: HYDROCHLOROTHIAZIDE
     Route: 048
     Dates: start: 20161121
  32. CORTANCYL [Concomitant]
     Active Substance: PREDNISONE
     Route: 048
     Dates: start: 20170428, end: 20170509
  33. CORTANCYL [Concomitant]
     Active Substance: PREDNISONE
     Route: 048
     Dates: start: 20170510, end: 20170522
  34. FUCIDINE [Concomitant]
     Active Substance: FUSIDIC ACID
     Dosage: 3 OTHER
     Route: 047
     Dates: start: 201705, end: 20170518

REACTIONS (1)
  - Endometritis bacterial [Recovered/Resolved]

NARRATIVE: CASE EVENT DATE: 20170513
